FAERS Safety Report 9424780 (Version 1)
Quarter: 2013Q3

REPORT INFORMATION
  Report Type: Spontaneous
  Country: US (occurrence: US)
  Receive Date: 20130729
  Receipt Date: 20130729
  Transmission Date: 20140515
  Serious: Yes (Other)
  Sender: FDA-Public Use
  Company Number: US-PFIZER INC-2013219864

PATIENT
  Age: 57 Year
  Sex: Male
  Weight: 108.84 kg

DRUGS (6)
  1. CHANTIX [Suspect]
     Indication: SMOKING CESSATION THERAPY
     Dosage: 0.5 MG, 1X/DAY
     Route: 048
  2. CHANTIX [Suspect]
     Dosage: 1 MG, 2X/DAY
     Route: 048
  3. LORAZEPAM [Concomitant]
     Dosage: 1 MG, UNK
  4. METFORMIN [Concomitant]
     Indication: DIABETES MELLITUS
     Dosage: UNK
  5. ESCITALOPRAM [Concomitant]
     Dosage: UNK
  6. TAMSULOSIN [Concomitant]
     Dosage: UNK

REACTIONS (4)
  - Non-Hodgkin^s lymphoma stage IV [Unknown]
  - Hearing impaired [Unknown]
  - Stress [Unknown]
  - Nausea [Unknown]
